FAERS Safety Report 7062145-X (Version None)
Quarter: 2010Q4

REPORT INFORMATION
  Report Type: 
  Country: None (occurrence: None)
  Receive Date: 20101026
  Receipt Date: 20101022
  Transmission Date: 20110411
  Serious: Yes (Life-Threatening, Hospitalization)
  Sender: FDA-Public Use
  Company Number: PHHO2010DE16120

PATIENT
  Sex: Male
  Weight: 94 kg

DRUGS (10)
  1. BLINDED ALISKIREN ALI+TAB+CF [Suspect]
     Dosage: CODE NOT BROKEN
     Route: 048
     Dates: end: 20101013
  2. ENALAPRIL MALEATE [Suspect]
     Dosage: CODE NOT BROKEN
     Route: 048
     Dates: end: 20101013
  3. BLINDED NO TREATMENT RECEIVED NOMED [Suspect]
     Dosage: CODE NOT BROKEN
     Route: 048
     Dates: end: 20101013
  4. COMPARATOR ENALAPRIL [Suspect]
     Indication: CARDIAC FAILURE
     Dosage: UNK
     Route: 048
     Dates: start: 20100421
  5. ALISKIREN [Suspect]
     Indication: CARDIAC FAILURE
  6. NEBIVOLOL [Concomitant]
  7. FALITHROM [Concomitant]
  8. LOCOL [Concomitant]
     Indication: HYPERCHOLESTEROLAEMIA
  9. DIGITOXIN [Concomitant]
     Indication: CARDIAC FAILURE
  10. TORASEMIDE [Concomitant]
     Indication: CARDIAC FAILURE

REACTIONS (4)
  - CARDIAC FAILURE [None]
  - DRUG INEFFECTIVE [None]
  - DYSPNOEA AT REST [None]
  - PULMONARY OEDEMA [None]
